FAERS Safety Report 6008510-0 (Version None)
Quarter: 2008Q4

REPORT INFORMATION
  Report Type: 
  Country: None (occurrence: None)
  Receive Date: 20081217
  Receipt Date: 20081208
  Transmission Date: 20090506
  Serious: Yes (Other)
  Sender: FDA-Public Use
  Company Number: US-ELI_LILLY_AND_COMPANY-US200811004802

PATIENT
  Age: 42 Year
  Sex: Female
  Weight: 84.354 kg

DRUGS (4)
  1. CYMBALTA [Suspect]
     Dosage: 60 MG, UNK
  2. TOPAMAX [Concomitant]
  3. AMBIEN [Concomitant]
  4. CLARINEX [Concomitant]

REACTIONS (1)
  - LIVER FUNCTION TEST ABNORMAL [None]
